FAERS Safety Report 20727255 (Version 3)
Quarter: 2022Q2

REPORT INFORMATION
  Report Type: Report from Study
  Country: RO (occurrence: RO)
  Receive Date: 20220419
  Receipt Date: 20220512
  Transmission Date: 20220721
  Serious: Yes (Life-Threatening, Hospitalization)
  Sender: FDA-Public Use
  Company Number: RO-BRISTOL-MYERS SQUIBB COMPANY-2022-022435

PATIENT
  Age: 60 Year
  Sex: Female
  Weight: 78 kg

DRUGS (11)
  1. PLACEBO [Suspect]
     Active Substance: UNSPECIFIED INGREDIENT
     Indication: Breast cancer
     Route: 042
     Dates: start: 20220103, end: 20220401
  2. PACLITAXEL [Suspect]
     Active Substance: PACLITAXEL
     Indication: Breast cancer
     Route: 042
     Dates: start: 20220103, end: 20220325
  3. DOXORUBICIN HYDROCHLORIDE [Suspect]
     Active Substance: DOXORUBICIN HYDROCHLORIDE
     Indication: Breast cancer
     Route: 042
     Dates: start: 20220401, end: 20220401
  4. CYCLOPHOSPHAMIDE [Suspect]
     Active Substance: CYCLOPHOSPHAMIDE
     Indication: Breast cancer
     Route: 042
     Dates: start: 20220401, end: 20220401
  5. AKYNZEO [Concomitant]
     Indication: Prophylaxis
     Dosage: 1 DOSAGE FORM= 1 UNITS NOS
     Route: 048
     Dates: start: 20220401, end: 20220401
  6. SKUDEXA (TRAMADOL/DEXKETOPROFEN) [Concomitant]
     Indication: Product used for unknown indication
     Dosage: 1 DOSAGE FORM= 1 UNITS NOS
     Route: 048
     Dates: start: 20220325, end: 20220408
  7. MYDOCALM(TOLPERISONE) [Concomitant]
     Indication: Product used for unknown indication
     Route: 048
     Dates: start: 20220325, end: 20220408
  8. GABARAN (GABAPENTIN) [Concomitant]
     Indication: Product used for unknown indication
     Route: 048
     Dates: start: 20220329, end: 20220329
  9. SINDOLOR GEL [Concomitant]
     Indication: Product used for unknown indication
     Dosage: ONGOING
     Route: 061
     Dates: start: 20220325
  10. IBUPROFEN [Concomitant]
     Active Substance: IBUPROFEN
     Indication: Product used for unknown indication
     Dosage: ONGOING
     Route: 048
     Dates: start: 20220226
  11. DORETA (TRAMADOL/PARACETAMOL) [Concomitant]
     Indication: Product used for unknown indication
     Dosage: 1 DOSAGE FORM =  1 UNIT NOS??ONGOING
     Route: 048
     Dates: start: 20220308

REACTIONS (1)
  - COVID-19 [Recovered/Resolved]

NARRATIVE: CASE EVENT DATE: 20220411
